FAERS Safety Report 5776154-1 (Version None)
Quarter: 2008Q2

REPORT INFORMATION
  Report Type: 
  Country: None (occurrence: None)
  Receive Date: 20080613
  Receipt Date: 20080606
  Transmission Date: 20081010
  Serious: Yes (Hospitalization)
  Sender: FDA-Public Use
  Company Number: 2008AL006601

PATIENT
  Sex: Male

DRUGS (5)
  1. DIPYRIDAMOLE [Suspect]
     Indication: CEREBROVASCULAR ACCIDENT
     Dosage: 200 MG;BID;PO
     Route: 048
     Dates: start: 20080507, end: 20080515
  2. ASPIRIN [Concomitant]
  3. SIMVASTATIN [Concomitant]
  4. PREDNISONE [Concomitant]
  5. RAMIPRIL [Concomitant]

REACTIONS (5)
  - CONFUSIONAL STATE [None]
  - HALLUCINATION, AUDITORY [None]
  - HALLUCINATION, VISUAL [None]
  - PARANOIA [None]
  - TEARFULNESS [None]
